FAERS Safety Report 9680352 (Version 1)
Quarter: 2013Q4

REPORT INFORMATION
  Report Type: Spontaneous
  Country: US (occurrence: US)
  Receive Date: 20131111
  Receipt Date: 20131111
  Transmission Date: 20140711
  Serious: Yes (Death)
  Sender: FDA-Public Use
  Company Number: US-ROCHE-1302036

PATIENT
  Sex: Female

DRUGS (10)
  1. AVASTIN [Suspect]
     Indication: BONE CANCER
     Route: 041
     Dates: start: 20110328, end: 20110328
  2. AVASTIN [Suspect]
     Indication: RECTAL CANCER
     Route: 041
     Dates: start: 20110602, end: 20110602
  3. ALOXI [Concomitant]
     Route: 041
  4. DECADRON [Concomitant]
     Route: 041
  5. 5-FU [Concomitant]
     Route: 041
  6. 5-FU [Concomitant]
     Route: 041
  7. ATROPINE [Concomitant]
     Route: 041
  8. KYTRIL [Concomitant]
     Route: 065
  9. CAMPTOSAR [Concomitant]
     Route: 041
  10. OXYCODONE [Concomitant]
     Route: 065

REACTIONS (2)
  - Death [Fatal]
  - Pain [Unknown]
